FAERS Safety Report 5030891-5 (Version None)
Quarter: 2006Q2

REPORT INFORMATION
  Report Type: 
  Country: None (occurrence: None)
  Receive Date: 20060619
  Receipt Date: 20060614
  Transmission Date: 20061013
  Serious: Yes (Hospitalization)
  Sender: FDA-Public Use
  Company Number: 0600136US

PATIENT
  Age: 10 Month
  Sex: Female
  Weight: 6.7 kg

DRUGS (1)
  1. ALESION SYRUP (EPINASTINE HYDROCHLORIDE) SYRUP [Suspect]
     Indication: DERMATITIS ATOPIC
     Dosage: 3 MG, ORAL
     Route: 048

REACTIONS (2)
  - CONVULSION [None]
  - PYREXIA [None]
